FAERS Safety Report 4831176-X (Version None)
Quarter: 2005Q4

REPORT INFORMATION
  Report Type: 
  Country: None (occurrence: None)
  Receive Date: 20051116
  Receipt Date: 20051116
  Transmission Date: 20060501
  Serious: Yes (Life-Threatening)
  Sender: FDA-Public Use
  Company Number: None

PATIENT
  Age: 65 Year
  Sex: Male
  Weight: 104.5 kg

DRUGS (2)
  1. DIOVAN - VALSARTAN-  80 MG    NOVARTIS [Suspect]
     Indication: DIABETES MELLITUS
     Dosage: 80 MG     DAILY   PO
     Route: 048
  2. DIOVAN - VALSARTAN-  80 MG    NOVARTIS [Suspect]
     Indication: HYPERTENSION
     Dosage: 80 MG     DAILY   PO
     Route: 048

REACTIONS (5)
  - ANGIONEUROTIC OEDEMA [None]
  - DYSPNOEA [None]
  - RASH PRURITIC [None]
  - URTICARIA [None]
  - WHEEZING [None]
